FAERS Safety Report 6725623-6 (Version None)
Quarter: 2010Q2

REPORT INFORMATION
  Report Type: 
  Country: None (occurrence: None)
  Receive Date: 20100514
  Receipt Date: 20100504
  Transmission Date: 20101027
  Serious: Yes (Other)
  Sender: FDA-Public Use
  Company Number: US-ABBOTT-08P-163-0437512-00

PATIENT
  Age: 40 Year
  Sex: Male
  Weight: 72.64 kg

DRUGS (1)
  1. BIAXIN XL [Suspect]
     Indication: SINUSITIS
     Route: 048
     Dates: start: 20080101, end: 20080208

REACTIONS (6)
  - CONFABULATION [None]
  - DISORIENTATION [None]
  - HALLUCINATION [None]
  - MANIA [None]
  - PSYCHOTIC DISORDER [None]
  - THINKING ABNORMAL [None]
